FAERS Safety Report 24434003 (Version 2)
Quarter: 2024Q4

REPORT INFORMATION
  Report Type: Spontaneous
  Country: TW (occurrence: TW)
  Receive Date: 20241014
  Receipt Date: 20241018
  Transmission Date: 20250115
  Serious: Yes (Other)
  Sender: MERCK
  Company Number: TW-009507513-2410TWN003373

PATIENT
  Age: 52 Year
  Sex: Female

DRUGS (1)
  1. PEMBROLIZUMAB [Suspect]
     Active Substance: PEMBROLIZUMAB
     Indication: Squamous cell carcinoma of the tongue
     Dosage: 200 MILLIGRAM, Q3W
     Dates: start: 20210319, end: 20230201

REACTIONS (7)
  - Cachexia [Not Recovered/Not Resolved]
  - Malignant neoplasm progression [Not Recovered/Not Resolved]
  - COVID-19 [Unknown]
  - Illness [Unknown]
  - Computerised tomogram abnormal [Unknown]
  - Eastern Cooperative Oncology Group performance status abnormal [Unknown]
  - Product use in unapproved indication [Unknown]

NARRATIVE: CASE EVENT DATE: 20210319
